FAERS Safety Report 11053788 (Version 2)
Quarter: 2015Q2

REPORT INFORMATION
  Report Type: Spontaneous
  Country: US (occurrence: US)
  Receive Date: 20150421
  Receipt Date: 20150525
  Transmission Date: 20150821
  Serious: No
  Sender: FDA-Public Use
  Company Number: US-JNJFOC-20130907090

PATIENT
  Age: 19 Year
  Sex: Male
  Weight: 63.5 kg

DRUGS (2)
  1. RISPERDAL CONSTA [Suspect]
     Active Substance: RISPERIDONE
     Indication: MENTAL DISORDER
     Route: 030
     Dates: start: 2013
  2. RISPERDAL CONSTA [Suspect]
     Active Substance: RISPERIDONE
     Indication: MENTAL DISORDER
     Route: 030
     Dates: start: 201304, end: 2013

REACTIONS (9)
  - Drug administration error [Recovered/Resolved]
  - Off label use [Unknown]
  - Underdose [Not Recovered/Not Resolved]
  - Injection site pain [Recovered/Resolved]
  - Wrong technique in drug usage process [Recovered/Resolved]
  - Weight increased [Not Recovered/Not Resolved]
  - Incorrect route of drug administration [Unknown]
  - Psychotic disorder [Unknown]
  - Injection site swelling [Unknown]

NARRATIVE: CASE EVENT DATE: 2013
